FAERS Safety Report 21920581 (Version 2)
Quarter: 2023Q1

REPORT INFORMATION
  Report Type: Spontaneous
  Country: US (occurrence: US)
  Receive Date: 20230127
  Receipt Date: 20230131
  Transmission Date: 20230417
  Serious: Yes (Life-Threatening, Hospitalization)
  Sender: FDA-Public Use
  Company Number: US-SERVIER-S23000827

PATIENT

DRUGS (6)
  1. ASPARLAS [Suspect]
     Active Substance: CALASPARGASE PEGOL-MKNL
     Indication: Acute lymphocytic leukaemia
     Dosage: 2500 IU/M2, ON D4
     Route: 042
     Dates: start: 20230104, end: 20230104
  2. CYTARABINE [Suspect]
     Active Substance: CYTARABINE
     Indication: Acute lymphocytic leukaemia
     Dosage: UNK, ON D1
     Route: 037
     Dates: start: 20221230
  3. VINCRISTINE SULFATE [Suspect]
     Active Substance: VINCRISTINE SULFATE
     Indication: Acute lymphocytic leukaemia
     Dosage: UNK, ON D1, 8, 15, 22
     Route: 042
     Dates: start: 20221230
  4. DAUNORUBICIN [Suspect]
     Active Substance: DAUNORUBICIN
     Indication: Acute lymphocytic leukaemia
     Dosage: UNK, ON D1, 8, 15, 22
     Route: 042
     Dates: start: 20221230
  5. DEXAMETHASONE [Suspect]
     Active Substance: DEXAMETHASONE
     Indication: Acute lymphocytic leukaemia
     Dosage: UNK, BID, ON D1-14
     Route: 065
     Dates: start: 20221230
  6. METHOTREXATE [Suspect]
     Active Substance: METHOTREXATE
     Indication: Acute lymphocytic leukaemia
     Dosage: UNK, ON D8 AND 29
     Route: 037
     Dates: start: 202212

REACTIONS (5)
  - Venoocclusive liver disease [Not Recovered/Not Resolved]
  - Cerebral haemorrhage [Not Recovered/Not Resolved]
  - Septic shock [Unknown]
  - Bacteraemia [Unknown]
  - Fungal infection [Unknown]

NARRATIVE: CASE EVENT DATE: 20230107
